FAERS Safety Report 6247781-2 (Version None)
Quarter: 2009Q2

REPORT INFORMATION
  Report Type: 
  Country: None (occurrence: None)
  Receive Date: 20090626
  Receipt Date: 20090623
  Transmission Date: 20091009
  Serious: Yes (Other)
  Sender: FDA-Public Use
  Company Number: US-JNJFOC-20090608386

PATIENT
  Age: 39 Year
  Sex: Male
  Weight: 88.45 kg

DRUGS (3)
  1. INVEGA [Suspect]
     Dosage: ONE HALF OF A 9 MG TABLET
     Route: 048
  2. INVEGA [Suspect]
     Indication: DEPRESSION
     Dosage: ONE HALF OF A 6 MG TABLET
     Route: 048
  3. XANAX [Concomitant]
     Indication: PANIC DISORDER

REACTIONS (10)
  - ANXIETY [None]
  - CYST [None]
  - DEPRESSION [None]
  - INSOMNIA [None]
  - MEMORY IMPAIRMENT [None]
  - PANIC ATTACK [None]
  - SOMNOLENCE [None]
  - STERNAL FRACTURE [None]
  - SUICIDAL IDEATION [None]
  - WRONG TECHNIQUE IN DRUG USAGE PROCESS [None]
